FAERS Safety Report 21760351 (Version 1)
Quarter: 2022Q4

REPORT INFORMATION
  Report Type: Spontaneous
  Country: US (occurrence: None)
  Receive Date: 20221220
  Receipt Date: 20221220
  Transmission Date: 20230113
  Serious: Yes (Disabling, Other)
  Sender: FDA-Public Use
  Company Number: None

PATIENT
  Age: 37 Year
  Sex: Female
  Weight: 72 kg

DRUGS (1)
  1. BUPRENORPHINE SUBLINGUAL [Suspect]
     Active Substance: BUPRENORPHINE HYDROCHLORIDE
     Indication: Pain
     Dosage: OTHER QUANTITY : 105 TABLET(S);?
     Route: 060

REACTIONS (6)
  - Dental caries [None]
  - Tooth fracture [None]
  - Feeling of despair [None]
  - Marital problem [None]
  - Quality of life decreased [None]
  - Psychiatric symptom [None]

NARRATIVE: CASE EVENT DATE: 20180101
